FAERS Safety Report 24045846 (Version 1)
Quarter: 2024Q3

REPORT INFORMATION
  Report Type: Spontaneous
  Country: JP (occurrence: JP)
  Receive Date: 20240703
  Receipt Date: 20240703
  Transmission Date: 20241016
  Serious: Yes (Other)
  Sender: UCB
  Company Number: JP-UCBJ-CD202406042UCBPHAPROD

PATIENT
  Age: 15 Year

DRUGS (1)
  1. FINTEPLA [Suspect]
     Active Substance: FENFLURAMINE
     Indication: Severe myoclonic epilepsy of infancy
     Dosage: 0.59 MILLIGRAM/KILOGRAM, ONCE DAILY (QD)
     Route: 048

REACTIONS (7)
  - Hallucination [Unknown]
  - Hallucination, auditory [Unknown]
  - Speech disorder [Unknown]
  - Somnolence [Unknown]
  - Personality change [Unknown]
  - Prescribed underdose [Unknown]
  - Off label use [Unknown]
